FAERS Safety Report 8875645 (Version 7)
Quarter: 2013Q4

REPORT INFORMATION
  Report Type: Spontaneous
  Country: US (occurrence: US)
  Receive Date: 20121030
  Receipt Date: 20131126
  Transmission Date: 20140711
  Serious: Yes (Hospitalization, Disabling, Other)
  Sender: FDA-Public Use
  Company Number: US-009507513-1210USA008667

PATIENT
  Sex: Female
  Weight: 83.9 kg

DRUGS (9)
  1. FOSAMAX [Suspect]
     Indication: OSTEOPOROSIS
     Dosage: 70 MG, QW
     Route: 048
     Dates: start: 200310
  2. ALENDRONATE SODIUM [Suspect]
     Dosage: 70 MG, UNK
  3. VITAMINS (UNSPECIFIED) [Concomitant]
     Dosage: UNK
     Dates: start: 1971
  4. SIMVASTATIN [Concomitant]
     Indication: HYPERLIPIDAEMIA
  5. LEXAPRO [Concomitant]
  6. SYNTHROID [Concomitant]
     Indication: HYPOTHYROIDISM
     Dosage: 0.1 MG, QD
     Route: 048
  7. CYMBALTA [Concomitant]
     Indication: DEPRESSION
     Dosage: 40 MG, QD
     Route: 048
  8. PREDNISONE [Concomitant]
     Indication: RHEUMATOID ARTHRITIS
     Dosage: UNK
     Dates: start: 2003, end: 2007
  9. VYTORIN [Concomitant]
     Indication: HYPERLIPIDAEMIA

REACTIONS (85)
  - Intervertebral disc operation [Unknown]
  - Surgery [Unknown]
  - Low turnover osteopathy [Not Recovered/Not Resolved]
  - Cellulitis [Unknown]
  - Pyrexia [Unknown]
  - Spinal osteoarthritis [Not Recovered/Not Resolved]
  - Spinal decompression [Unknown]
  - Post procedural haematoma [Unknown]
  - Post procedural haematoma [Unknown]
  - Post procedural haematoma [Unknown]
  - Dental prosthesis placement [Unknown]
  - Rotator cuff syndrome [Unknown]
  - Cough [Unknown]
  - Vitamin D deficiency [Unknown]
  - Carpal tunnel syndrome [Unknown]
  - Rotator cuff syndrome [Unknown]
  - Bursitis [Unknown]
  - Arthrofibrosis [Unknown]
  - Hand fracture [Unknown]
  - Hypertension [Unknown]
  - Electrocardiogram T wave abnormal [Unknown]
  - Intervertebral disc degeneration [Unknown]
  - Intervertebral disc degeneration [Unknown]
  - Intervertebral disc degeneration [Unknown]
  - Intervertebral disc disorder [Unknown]
  - Joint surgery [Unknown]
  - Arthritis [Unknown]
  - Anxiety [Unknown]
  - Medical device removal [Unknown]
  - Ankle fracture [Unknown]
  - Medical device removal [Unknown]
  - Spinal osteoarthritis [Unknown]
  - Spinal osteoarthritis [Unknown]
  - Paraesthesia [Unknown]
  - Complex regional pain syndrome [Unknown]
  - Sciatica [Unknown]
  - Sacroiliitis [Unknown]
  - Hyperaesthesia [Unknown]
  - Arthritis [Unknown]
  - Fall [Unknown]
  - Infection [Unknown]
  - Tinnitus [Unknown]
  - Micturition urgency [Unknown]
  - Medical device removal [Unknown]
  - Gallbladder disorder [Unknown]
  - Gait disturbance [Unknown]
  - Bunion [Unknown]
  - Hand fracture [Unknown]
  - Scoliosis [Unknown]
  - Chest pain [Unknown]
  - Peptic ulcer [Unknown]
  - Enterococcus test positive [Unknown]
  - Confusional state [Unknown]
  - Local swelling [Unknown]
  - Dysuria [Unknown]
  - Fatigue [Unknown]
  - Anaemia [Unknown]
  - Asthenia [Unknown]
  - Palpitations [Unknown]
  - Pain in extremity [Unknown]
  - Back pain [Unknown]
  - Gastrooesophageal reflux disease [Unknown]
  - Dizziness [Unknown]
  - Headache [Unknown]
  - Headache [Unknown]
  - Muscle spasms [Unknown]
  - Abdominal pain [Unknown]
  - Gastritis [Unknown]
  - Drug ineffective [Unknown]
  - Headache [Unknown]
  - Femur fracture [Not Recovered/Not Resolved]
  - Femur fracture [Not Recovered/Not Resolved]
  - Femur fracture [Unknown]
  - Stress fracture [Not Recovered/Not Resolved]
  - Spinal fusion surgery [Unknown]
  - Spinal fusion surgery [Unknown]
  - Spinal laminectomy [Unknown]
  - Open reduction of fracture [Unknown]
  - Knee arthroplasty [Unknown]
  - Knee arthroplasty [Unknown]
  - Joint arthroplasty [Unknown]
  - Shoulder arthroplasty [Unknown]
  - Osteoporosis [Not Recovered/Not Resolved]
  - Localised infection [Unknown]
  - Debridement [Unknown]
